FAERS Safety Report 8062374-2 (Version None)
Quarter: 2011Q4

REPORT INFORMATION
  Report Type: 
  Country: None (occurrence: None)
  Receive Date: 20111220
  Receipt Date: 20110917
  Transmission Date: 20120403
  Serious: Yes (Hospitalization)
  Sender: FDA-Public Use
  Company Number: PHHY2011US40913

PATIENT
  Age: 54 Year
  Sex: Female
  Weight: 48 kg

DRUGS (10)
  1. SIROLIMUS (RAPAMUNE) [Concomitant]
  2. RAMIPRIL [Concomitant]
  3. METOPROLOL TARTRATE [Concomitant]
  4. MYCOPHENOLIC ACID [Suspect]
     Indication: RENAL TRANSPLANT
     Dosage: 360 MG, (DAILY), ORAL
     Route: 048
     Dates: start: 20091103
  5. TACROLIMUS [Concomitant]
  6. INSULIN [Concomitant]
  7. PROPRANOLOL [Concomitant]
  8. ENALAPRIL MALEATE [Concomitant]
  9. CYCLOSPORINE [Concomitant]
  10. CARVEDIOL (CARVEDIOL ) [Concomitant]

REACTIONS (2)
  - HYPERTENSION [None]
  - FATIGUE [None]
